FAERS Safety Report 16971286 (Version 1)
Quarter: 2019Q4

REPORT INFORMATION
  Report Type: Report from Study
  Country: US (occurrence: US)
  Receive Date: 20191029
  Receipt Date: 20191029
  Transmission Date: 20200122
  Serious: Yes (Other)
  Sender: FDA-Public Use
  Company Number: US-EXELIXIS-CABO-19023704

PATIENT
  Sex: Male

DRUGS (3)
  1. CABOMETYX [Suspect]
     Active Substance: CABOZANTINIB S-MALATE
     Dosage: 40 MG, QD (AT 8 IN THE MORNING WITHOUT FOOD)
     Dates: end: 20190919
  2. CABOMETYX [Suspect]
     Active Substance: CABOZANTINIB S-MALATE
     Indication: HEPATOCELLULAR CARCINOMA
     Dosage: 40 MG, QD (AT 8 IN THE MORNING WITHOUT FOOD)
     Dates: start: 20190812
  3. CABOMETYX [Suspect]
     Active Substance: CABOZANTINIB S-MALATE
     Dosage: 40 MG, QOD
     Dates: start: 20190923

REACTIONS (10)
  - Palmar-plantar erythrodysaesthesia syndrome [Recovering/Resolving]
  - Disorientation [Not Recovered/Not Resolved]
  - Fatigue [Recovering/Resolving]
  - Blindness [Not Recovered/Not Resolved]
  - Arthralgia [Not Recovered/Not Resolved]
  - Product dose omission [Unknown]
  - Hypersomnia [Recovering/Resolving]
  - Confusional state [Not Recovered/Not Resolved]
  - Hypertension [Recovered/Resolved]
  - Asthenia [Not Recovered/Not Resolved]
